FAERS Safety Report 18848016 (Version 1)
Quarter: 2021Q1

REPORT INFORMATION
  Report Type: Spontaneous
  Country: ES (occurrence: ES)
  Receive Date: 20210204
  Receipt Date: 20210204
  Transmission Date: 20210419
  Serious: Yes (Disabling)
  Sender: FDA-Public Use
  Company Number: ES-OTSUKA-2021_003057

PATIENT
  Age: 49 Year
  Sex: Male
  Weight: 92.1 kg

DRUGS (1)
  1. ABILIFY [Suspect]
     Active Substance: ARIPIPRAZOLE
     Indication: PSYCHOTIC DISORDER
     Dosage: 5MG, QD
     Route: 048
     Dates: start: 2019

REACTIONS (3)
  - Ejaculation failure [Not Recovered/Not Resolved]
  - Product use in unapproved indication [Unknown]
  - Erectile dysfunction [Not Recovered/Not Resolved]

NARRATIVE: CASE EVENT DATE: 2019
